FAERS Safety Report 19964253 (Version 1)
Quarter: 2021Q4

REPORT INFORMATION
  Report Type: Spontaneous
  Country: FR (occurrence: FR)
  Receive Date: 20211018
  Receipt Date: 20211018
  Transmission Date: 20220303
  Serious: Yes (Other)
  Sender: FDA-Public Use
  Company Number: None

PATIENT
  Age: 76 Year
  Sex: Male
  Weight: 84 kg

DRUGS (6)
  1. PIPERACILLIN AND TAZOBACTAM [Suspect]
     Active Substance: PIPERACILLIN SODIUM\TAZOBACTAM SODIUM
     Indication: Staphylococcal sepsis
     Dosage: 4 GRAM, QD (4G/500MCG)
     Route: 042
     Dates: start: 20200807, end: 20200809
  2. CLOXACILLIN SODIUM [Suspect]
     Active Substance: CLOXACILLIN SODIUM
     Indication: Staphylococcal sepsis
     Dosage: 12 GRAM, QD
     Route: 042
     Dates: start: 20200810
  3. VANCOMYCIN [Suspect]
     Active Substance: VANCOMYCIN
     Indication: Staphylococcal sepsis
     Dosage: 2 GRAM, QD
     Route: 042
     Dates: start: 20200807, end: 20200809
  4. GENTAMICIN [Suspect]
     Active Substance: GENTAMICIN
     Indication: Staphylococcal sepsis
     Dosage: 90 MILLIGRAM, QD
     Route: 042
     Dates: start: 20200810, end: 20200813
  5. HYDROCORTISONE [Suspect]
     Active Substance: HYDROCORTISONE
     Indication: Staphylococcal sepsis
     Dosage: 20 MILLIGRAM
     Route: 048
     Dates: start: 20200807, end: 20200914
  6. FUROSEMIDE [Suspect]
     Active Substance: FUROSEMIDE
     Indication: Cardiac failure
     Dosage: 20 MILLIGRAM
     Route: 042
     Dates: start: 20200807, end: 20200914

REACTIONS (1)
  - Hyperkalaemia [Recovered/Resolved]

NARRATIVE: CASE EVENT DATE: 20200810
